FAERS Safety Report 5452725-7 (Version None)
Quarter: 2007Q3

REPORT INFORMATION
  Report Type: 
  Country: None (occurrence: None)
  Receive Date: 20070914
  Receipt Date: 20070905
  Transmission Date: 20080115
  Serious: Yes (Hospitalization)
  Sender: FDA-Public Use
  Company Number: BE-ASTRAZENECA-2007AC01664

PATIENT
  Age: 70 Year
  Sex: Female
  Weight: 68 kg

DRUGS (4)
  1. NEXIUM [Suspect]
     Indication: DYSPEPSIA
     Route: 048
     Dates: end: 20070720
  2. NOVOTHYROL [Concomitant]
     Indication: CONGENITAL HYPOTHYROIDISM
     Route: 048
  3. LIPANTHYL [Concomitant]
     Indication: HYPERCHOLESTEROLAEMIA
     Route: 048
  4. TENORMIN [Concomitant]
     Indication: TACHYCARDIA
     Route: 048

REACTIONS (3)
  - LEUKOCYTOCLASTIC VASCULITIS [None]
  - PYREXIA [None]
  - RASH PRURITIC [None]
